FAERS Safety Report 7815892-3 (Version None)
Quarter: 2011Q4

REPORT INFORMATION
  Report Type: 
  Country: None (occurrence: None)
  Receive Date: 20111014
  Receipt Date: 20110930
  Transmission Date: 20120403
  Serious: Yes (Other)
  Sender: FDA-Public Use
  Company Number: US-SANOFI-AVENTIS-2011SA064843

PATIENT
  Age: 57 Year
  Sex: Female

DRUGS (2)
  1. SOLOSTAR [Suspect]
     Dates: start: 20100901
  2. LANTUS [Suspect]
     Dosage: DOSE:57 UNIT(S)
     Route: 058
     Dates: start: 20100901

REACTIONS (6)
  - SURGERY [None]
  - BLOOD GLUCOSE INCREASED [None]
  - MALAISE [None]
  - INJECTION SITE PAIN [None]
  - PRODUCT QUALITY ISSUE [None]
  - DEVICE MALFUNCTION [None]
